FAERS Safety Report 8466127 (Version 3)
Quarter: 2014Q1

REPORT INFORMATION
  Report Type: Spontaneous
  Country: US (occurrence: US)
  Receive Date: 20120319
  Receipt Date: 20140317
  Transmission Date: 20141002
  Serious: Yes (Hospitalization, Other)
  Sender: FDA-Public Use
  Company Number: US-BAYER-2012-024311

PATIENT
  Age: 34 Year
  Sex: Female
  Weight: 120.7 kg

DRUGS (24)
  1. YAZ [Suspect]
     Indication: ACNE
     Dosage: UNK
     Dates: start: 200001, end: 2009
  2. YAZ [Suspect]
     Indication: PREMENSTRUAL SYNDROME
  3. YAZ [Suspect]
     Indication: MENSTRUAL CYCLE MANAGEMENT
  4. YASMIN [Suspect]
     Indication: PREMENSTRUAL SYNDROME
     Dosage: UNK
     Dates: start: 200001, end: 2009
  5. YASMIN [Suspect]
     Indication: ACNE
  6. CEFADROXIL [Concomitant]
     Dosage: UNK
     Dates: start: 2007
  7. VITAMIN C [Concomitant]
     Dosage: UNK
     Dates: start: 2000
  8. ADVIL [Concomitant]
     Dosage: UNK
     Dates: start: 1992
  9. METFORMIN [Concomitant]
     Indication: POLYCYSTIC OVARIES
     Dosage: UNK
     Dates: start: 2000
  10. METFORMIN [Concomitant]
     Indication: DEPRESSION
  11. SPIRONOLACTONE [Concomitant]
     Indication: POLYCYSTIC OVARIES
     Dosage: UNK
     Dates: start: 2000
  12. SPIRONOLACTONE [Concomitant]
     Indication: DEPRESSION
  13. ZOLOFT [Concomitant]
     Indication: POLYCYSTIC OVARIES
     Dosage: UNK
     Dates: start: 2000
  14. ZOLOFT [Concomitant]
     Indication: DEPRESSION
  15. LEXAPRO [Concomitant]
     Indication: DEPRESSION
     Dosage: UNK
     Dates: start: 2006
  16. SINGULAIR [Concomitant]
     Indication: MULTIPLE ALLERGIES
     Dosage: UNK
     Dates: start: 2006
  17. LORTAB [Concomitant]
     Indication: BACK PAIN
     Dosage: UNK
     Dates: start: 2006
  18. MULTIVITAMINS [Concomitant]
     Dosage: UNK
  19. PROVENTIL [Concomitant]
     Dosage: 90 MCG/24HR, UNK
     Dates: start: 20100713
  20. MAXALT [Concomitant]
     Dosage: 10 MG, UNK
     Route: 048
     Dates: start: 20100808
  21. TAZORAC [Concomitant]
     Dosage: 0.1 %, UNK
     Route: 061
     Dates: start: 20100812
  22. PROMETHAZINE [Concomitant]
     Dosage: 25 MG, UNK
     Route: 048
     Dates: start: 20101029
  23. TAMIFLU [Concomitant]
     Dosage: 75 MG, UNK
     Route: 048
     Dates: start: 20101019
  24. DOXYCYCLINE HYCLATE [Concomitant]
     Dosage: 100 MG, UNK
     Route: 048
     Dates: start: 20101003, end: 20101031

REACTIONS (8)
  - Cholecystitis chronic [None]
  - Cholelithiasis [None]
  - Pain [None]
  - Injury [None]
  - General physical health deterioration [None]
  - Anxiety [None]
  - Anhedonia [None]
  - Emotional distress [None]
